FAERS Safety Report 19139748 (Version 3)
Quarter: 2021Q4

REPORT INFORMATION
  Report Type: Report from Study
  Country: GB (occurrence: GB)
  Receive Date: 20210415
  Receipt Date: 20211020
  Transmission Date: 20220303
  Serious: Yes (Other)
  Sender: FDA-Public Use
  Company Number: GB-PFIZER INC-2021401848

PATIENT
  Weight: 25.4 kg

DRUGS (24)
  1. GEMTUZUMAB OZOGAMICIN [Suspect]
     Active Substance: GEMTUZUMAB OZOGAMICIN
     Indication: Acute myeloid leukaemia
     Dosage: 3 MG (OTHER)
     Route: 042
     Dates: start: 20210319, end: 20210325
  2. MITOXANTRONE HYDROCHLORIDE [Suspect]
     Active Substance: MITOXANTRONE HYDROCHLORIDE
     Indication: Acute myeloid leukaemia
     Dosage: 12 MG/M2, 1X/DAY
     Route: 042
     Dates: start: 20210316, end: 20210319
  3. MEROPENEM [Concomitant]
     Active Substance: MEROPENEM
     Indication: Sepsis
     Dosage: 540 MG, 3X/DAY
     Dates: start: 20210310, end: 20210327
  4. MEROPENEM [Concomitant]
     Active Substance: MEROPENEM
     Dosage: 540 MG, 1X/DAY
     Dates: start: 20210407
  5. AMPHOTERICIN B [Concomitant]
     Active Substance: AMPHOTERICIN B
     Indication: Blood beta-D-glucan positive
     Dosage: 50 MG (OTHER) 3X WEEKLY
     Dates: start: 20210310, end: 20210328
  6. AMPHOTERICIN B [Concomitant]
     Active Substance: AMPHOTERICIN B
     Dosage: 80 MG, 1X/DAY
     Dates: start: 20210329
  7. ONDANSETRON [Concomitant]
     Active Substance: ONDANSETRON
     Indication: Antiemetic supportive care
     Dosage: 5 MG, 3X/DAY
     Dates: start: 20210316, end: 20210326
  8. ONDANSETRON [Concomitant]
     Active Substance: ONDANSETRON
     Dosage: 5 MG, AS NEEDED (OTHER)
     Dates: start: 20210407, end: 20210409
  9. CYCLIZINE [Concomitant]
     Active Substance: CYCLIZINE
     Indication: Antiemetic supportive care
     Dosage: 25 MG, 2X/DAY
     Dates: start: 20210316, end: 20210330
  10. GENTAMICIN [Concomitant]
     Active Substance: GENTAMICIN
     Indication: Sepsis
     Dosage: 190 MG, 1X/DAY
     Dates: start: 20210327, end: 20210330
  11. PIPERACILLIN SODIUM\TAZOBACTAM SODIUM [Concomitant]
     Active Substance: PIPERACILLIN SODIUM\TAZOBACTAM SODIUM
     Indication: Sepsis
     Dosage: 2.4 G, 3X/DAY
     Dates: start: 20210331, end: 20210407
  12. OINTMENT NO.1 [Concomitant]
     Indication: Dry skin
     Dosage: 50/50 OINTMENT
  13. DERMAL [Concomitant]
     Indication: Dry skin
     Dosage: UNK, 2X/DAY
  14. COTRIMOXAZOLE [Concomitant]
     Active Substance: SULFAMETHOXAZOLE\TRIMETHOPRIM
     Indication: Prophylaxis
     Dosage: 480 MG (OTHER)
     Dates: start: 20210326
  15. OMEPRAZOLE [Concomitant]
     Active Substance: OMEPRAZOLE
     Indication: Gastrointestinal haemorrhage
     Dosage: 20 MG, 1X/DAY
     Dates: start: 20210322
  16. METRONIDAZOLE [Concomitant]
     Active Substance: METRONIDAZOLE
     Indication: Gastrointestinal infection
     Dosage: 200 MG, 3X/DAY
     Dates: start: 20210327, end: 20210331
  17. ACETAMINOPHEN [Concomitant]
     Active Substance: ACETAMINOPHEN
     Indication: Pyrexia
     Dosage: 375 MG AS NEEDED (OTHER)
     Dates: start: 20210316
  18. LEVOMEPROMAZINE [Concomitant]
     Active Substance: LEVOMEPROMAZINE
     Indication: Antiemetic supportive care
     Dosage: 0.5 MG, AS NEEDED (OTHER)
     Dates: start: 20210318, end: 20210406
  19. HEPARIN SODIUM [Concomitant]
     Active Substance: HEPARIN SODIUM
     Indication: Catheter management
     Dosage: 1 ML, AS NEEDED (OTHER)
     Dates: start: 20210324
  20. AMILORIDE [Concomitant]
     Active Substance: AMILORIDE
     Indication: Hypokalaemia
     Dosage: 2.5 MG, 2X/DAY
     Dates: start: 20210408
  21. TEICOPLANIN [Concomitant]
     Active Substance: TEICOPLANIN
     Indication: Sepsis
     Dosage: 270 MG, 1X/DAY
     Dates: start: 20210406
  22. LENOGRASTIM [Concomitant]
     Active Substance: LENOGRASTIM
     Indication: Immunochemotherapy
     Dosage: 97 MIU, 1X/DAY (16.8 OTHER (MILLION.MTS))
  23. CIPROFLOXACIN [Concomitant]
     Active Substance: CIPROFLOXACIN
     Indication: Gastrointestinal infection
     Dosage: 250 MG, 3X/DAY
  24. POTASSIUM [Concomitant]
     Active Substance: POTASSIUM
     Indication: Hypokalaemia
     Dosage: 1 DF, 2X/DAY
     Dates: start: 20210408, end: 20210409

REACTIONS (4)
  - Hypokalaemia [Not Recovered/Not Resolved]
  - Gastrointestinal haemorrhage [Not Recovered/Not Resolved]
  - Vomiting [Not Recovered/Not Resolved]
  - Febrile neutropenia [Not Recovered/Not Resolved]

NARRATIVE: CASE EVENT DATE: 20210404
